FAERS Safety Report 7500183-0 (Version None)
Quarter: 2011Q2

REPORT INFORMATION
  Report Type: 
  Country: None (occurrence: None)
  Receive Date: 20110524
  Receipt Date: 20100412
  Transmission Date: 20111010
  Serious: No
  Sender: FDA-Public Use
  Company Number: US-NOVEN-ALL1-2010-02190

PATIENT

DRUGS (5)
  1. MOTRIN [Concomitant]
     Dosage: UNK MG, AS REQ'D
     Route: 048
  2. ALBUTEROL [Concomitant]
     Dosage: UNK MG, AS REQ'D
     Route: 055
  3. DAYTRANA [Suspect]
     Dosage: 10 MG, 1X/DAY:QD
     Route: 062
     Dates: start: 20100101, end: 20100201
  4. DAYTRANA [Suspect]
     Dosage: 20 MG, OTHER (2) 10MG PATCHES
     Route: 062
     Dates: start: 20100201, end: 20100201
  5. TYLENOL (CAPLET) [Concomitant]
     Dosage: UNK MG, AS REQ'D
     Route: 048

REACTIONS (4)
  - APPLICATION SITE PAIN [None]
  - APPLICATION SITE IRRITATION [None]
  - APPLICATION SITE ERYTHEMA [None]
  - DRUG INEFFECTIVE [None]
